FAERS Safety Report 9274757 (Version 3)
Quarter: 2013Q3

REPORT INFORMATION
  Report Type: Spontaneous
  Country: US (occurrence: US)
  Receive Date: 20130507
  Receipt Date: 20130806
  Transmission Date: 20140515
  Serious: No
  Sender: FDA-Public Use
  Company Number: US-009507513-1305USA000669

PATIENT
  Age: 22 Year
  Sex: Female
  Weight: 58.96 kg

DRUGS (3)
  1. PEGINTRON [Suspect]
     Dosage: 80 MICROGRAM/0.5 ML , QW, REDIPEN
     Route: 058
  2. REBETOL [Suspect]
     Dosage: UNK
  3. VICTRELIS [Suspect]
     Dosage: 800 MG, TID WITH FOOD

REACTIONS (5)
  - Rash pruritic [Unknown]
  - Pain [Unknown]
  - Rash pruritic [Recovering/Resolving]
  - Headache [Unknown]
  - Vomiting [Unknown]
